FAERS Safety Report 6533102-4 (Version None)
Quarter: 2010Q1

REPORT INFORMATION
  Report Type: 
  Country: None (occurrence: None)
  Receive Date: 20100111
  Receipt Date: 20091229
  Transmission Date: 20100710
  Serious: No
  Sender: FDA-Public Use
  Company Number: US-B.I. PHARMACEUTICALS,INC./RIDGEFIELD-2009-BP-14941BP

PATIENT
  Sex: Female

DRUGS (3)
  1. COMBIVENT [Suspect]
     Indication: CHRONIC OBSTRUCTIVE PULMONARY DISEASE
     Route: 055
     Dates: start: 20081225, end: 20090301
  2. COMBIVENT [Suspect]
     Indication: BRONCHITIS
  3. FLOVENT [Concomitant]
     Indication: BRONCHITIS
     Dates: start: 20081225

REACTIONS (2)
  - DRY MOUTH [None]
  - OROPHARYNGEAL PAIN [None]
